FAERS Safety Report 14056691 (Version 6)
Quarter: 2018Q4

REPORT INFORMATION
  Report Type: Spontaneous
  Country: KR (occurrence: KR)
  Receive Date: 20171006
  Receipt Date: 20181204
  Transmission Date: 20190204
  Serious: Yes (Other)
  Sender: FDA-Public Use
  Company Number: KR-009507513-1710KOR001280

PATIENT
  Age: 26 Year
  Sex: Male

DRUGS (16)
  1. OMP [Concomitant]
     Active Substance: OMEPRAZOLE
     Indication: GASTRITIS PROPHYLAXIS
     Dosage: 1 TABLET, QD
     Route: 048
     Dates: start: 20170615, end: 20170624
  2. FLASINYL [Concomitant]
     Dosage: 500 MG, BID
     Route: 048
     Dates: start: 20170612, end: 20170614
  3. CYTARABINE. [Concomitant]
     Active Substance: CYTARABINE
     Indication: ACUTE MYELOID LEUKAEMIA
     Dosage: 370 MILLIGRAM,STRENGTH: 50MG/ML, 20ML/BTL
     Route: 042
     Dates: start: 20170601, end: 20170607
  4. NOXAFIL [Suspect]
     Active Substance: POSACONAZOLE
     Indication: ANTIFUNGAL PROPHYLAXIS
     Dosage: 300 MG, BID
     Route: 048
     Dates: start: 20170604, end: 20170604
  5. SEPTRIN [Concomitant]
     Active Substance: SULFAMETHOXAZOLE\TRIMETHOPRIM
     Dosage: 2 TABLET, QD
     Route: 048
     Dates: start: 20170619, end: 20170627
  6. BEARSE [Concomitant]
     Indication: GASTRITIS PROPHYLAXIS
     Dosage: 1 TABLET, QD
     Route: 048
     Dates: start: 20170611, end: 20170616
  7. FLASINYL [Concomitant]
     Indication: INFECTION PROPHYLAXIS
     Dosage: 500 MG, BID
     Route: 048
     Dates: start: 20170530, end: 20170530
  8. TYLENOL 8HR [Concomitant]
     Active Substance: ACETAMINOPHEN
     Indication: WOUND ABSCESS
     Dosage: 1 TABLET, TID
     Route: 048
     Dates: start: 20170601, end: 20170624
  9. CELECOXIB. [Concomitant]
     Active Substance: CELECOXIB
     Indication: WOUND ABSCESS
     Dosage: 1 CAPSULE, BID
     Route: 048
     Dates: start: 20170604, end: 20170609
  10. NOXAFIL [Suspect]
     Active Substance: POSACONAZOLE
     Dosage: 300 MG, QD
     Route: 048
     Dates: start: 20170605, end: 20170619
  11. GRASIN [Concomitant]
     Indication: ACUTE MYELOID LEUKAEMIA
     Dosage: 1 AMPLE, QD
     Route: 058
     Dates: start: 20170614, end: 20170622
  12. SEPTRIN [Concomitant]
     Active Substance: SULFAMETHOXAZOLE\TRIMETHOPRIM
     Indication: ACUTE MYELOID LEUKAEMIA
     Dosage: 2 TABLET, QD
     Route: 048
     Dates: start: 20170602, end: 20170609
  13. ZOYLEX [Concomitant]
     Indication: ACUTE MYELOID LEUKAEMIA
     Dosage: 400 MILLIGRAM, BID
     Route: 048
     Dates: start: 20170601, end: 20170611
  14. ULCERLMIN [Concomitant]
     Active Substance: SUCRALFATE
     Indication: APPENDICITIS PERFORATED
     Dosage: STRENGHT: 1G/15ML; 1 PACK, TID
     Route: 048
     Dates: start: 20170608, end: 20170624
  15. CYTARABINE. [Concomitant]
     Active Substance: CYTARABINE
     Indication: ACUTE MYELOID LEUKAEMIA
     Dosage: 370 MILLIGRAM, QD
     Route: 042
     Dates: start: 20170601, end: 20170607
  16. MEROPENEM. [Concomitant]
     Active Substance: MEROPENEM
     Indication: APPENDICITIS PERFORATED
     Dosage: 2 VIAL, TID
     Route: 042
     Dates: start: 20170520, end: 20170622

REACTIONS (3)
  - Pruritus [Recovered/Resolved]
  - Febrile neutropenia [Recovered/Resolved]
  - Aspartate aminotransferase increased [Recovered/Resolved]

NARRATIVE: CASE EVENT DATE: 20170607
